FAERS Safety Report 12074501 (Version 1)
Quarter: 2016Q1

REPORT INFORMATION
  Report Type: Spontaneous
  Country: DE (occurrence: DE)
  Receive Date: 20160212
  Receipt Date: 20160212
  Transmission Date: 20160526
  Serious: Yes (Other)
  Sender: FDA-Public Use
  Company Number: DE-PFIZER INC-2016079791

PATIENT
  Sex: Male

DRUGS (1)
  1. SILDENAFIL PFIZER [Suspect]
     Active Substance: SILDENAFIL
     Dosage: 50 MG, AS NEEDED

REACTIONS (2)
  - Retinal haemorrhage [Unknown]
  - Retinal vascular occlusion [Unknown]
